FAERS Safety Report 6607460-6 (Version None)
Quarter: 2010Q1

REPORT INFORMATION
  Report Type: 
  Country: None (occurrence: None)
  Receive Date: 20100301
  Receipt Date: 20100218
  Transmission Date: 20100710
  Serious: Yes (Other)
  Sender: FDA-Public Use
  Company Number: US-JNJFOC-20091107377

PATIENT
  Sex: Female

DRUGS (4)
  1. REMICADE [Suspect]
     Indication: RHEUMATOID ARTHRITIS
     Route: 042
     Dates: start: 20090512, end: 20091124
  2. REMICADE [Suspect]
     Route: 042
     Dates: start: 20090512, end: 20091124
  3. REMICADE [Suspect]
     Route: 042
     Dates: start: 20090512, end: 20091124
  4. PREDNISONE [Concomitant]
     Indication: RHEUMATOID ARTHRITIS
     Route: 048

REACTIONS (2)
  - HIP ARTHROPLASTY [None]
  - POSTOPERATIVE WOUND INFECTION [None]
